FAERS Safety Report 9218207 (Version 1)
Quarter: 2013Q2

REPORT INFORMATION
  Report Type: Spontaneous
  Country: US (occurrence: US)
  Receive Date: 20130408
  Receipt Date: 20130408
  Transmission Date: 20140414
  Serious: Yes (Other)
  Sender: FDA-Public Use
  Company Number: US-UCBSA-082354

PATIENT
  Age: 24 Year
  Sex: Male

DRUGS (1)
  1. VIMPAT [Suspect]
     Indication: CONVULSION

REACTIONS (2)
  - Aggression [Recovered/Resolved]
  - Intentional self-injury [Recovered/Resolved]
